FAERS Safety Report 15667430 (Version 2)
Quarter: 2019Q3

REPORT INFORMATION
  Report Type: Spontaneous
  Country: US (occurrence: US)
  Receive Date: 20181128
  Receipt Date: 20190920
  Transmission Date: 20191004
  Serious: No
  Sender: FDA-Public Use
  Company Number: US-PFIZER INC-2018481229

PATIENT
  Age: 60 Year
  Sex: Male

DRUGS (1)
  1. SUTENT [Suspect]
     Active Substance: SUNITINIB MALATE
     Indication: MALIGNANT URINARY TRACT NEOPLASM
     Dosage: 50 MG, CYCLIC [TAKE 1 CAPSULE BY MOUTH DAILY FOR 4 WEEKS FOLLOWED BY 2 WEEKS OFF]
     Route: 048
     Dates: start: 201810

REACTIONS (2)
  - Neoplasm progression [Not Recovered/Not Resolved]
  - Fatigue [Unknown]
